FAERS Safety Report 19420201 (Version 2)
Quarter: 2021Q4

REPORT INFORMATION
  Report Type: Report from Study
  Country: GB (occurrence: GB)
  Receive Date: 20210615
  Receipt Date: 20211122
  Transmission Date: 20220304
  Serious: Yes (Other)
  Sender: FDA-Public Use
  Company Number: GB-TAKEDA-2020TUS002045

PATIENT
  Sex: Male

DRUGS (2)
  1. IXAZOMIB [Suspect]
     Active Substance: IXAZOMIB
     Indication: Plasma cell myeloma
     Dosage: 3 MILLIGRAM
     Route: 048
     Dates: start: 20190819, end: 20200107
  2. IXAZOMIB [Suspect]
     Active Substance: IXAZOMIB
     Dosage: 2.3 MILLIGRAM
     Route: 048

REACTIONS (12)
  - Neutropenia [Unknown]
  - Asthenia [Unknown]
  - Cough [Unknown]
  - Dyspnoea [Unknown]
  - Pruritus [Recovered/Resolved]
  - Decreased appetite [Unknown]
  - Neck pain [Unknown]
  - Depressed mood [Unknown]
  - Back pain [Unknown]
  - Nasopharyngitis [Unknown]
  - Malaise [Unknown]
  - Body temperature increased [Unknown]
